FAERS Safety Report 14962432 (Version 1)
Quarter: 2018Q2

REPORT INFORMATION
  Report Type: Spontaneous
  Country: US (occurrence: US)
  Receive Date: 20180601
  Receipt Date: 20180601
  Transmission Date: 20180711
  Serious: Yes (Hospitalization)
  Sender: FDA-Public Use
  Company Number: US-HORIZON-PRO-0108-2018

PATIENT
  Age: 27 Year
  Sex: Male
  Weight: 61.2 kg

DRUGS (1)
  1. PROCYSBI [Suspect]
     Active Substance: CYSTEAMINE BITARTRATE
     Indication: CYSTINOSIS
     Dosage: 15 X 75 MG CAPS (1125 MG) EVERY 12 HOURS
     Route: 048

REACTIONS (5)
  - Pneumonia [Unknown]
  - Patient dissatisfaction with treatment [Unknown]
  - Decreased appetite [Unknown]
  - Decreased activity [Unknown]
  - Abdominal distension [Unknown]
